FAERS Safety Report 23037129 (Version 1)
Quarter: 2023Q4

REPORT INFORMATION
  Report Type: Spontaneous
  Country: US (occurrence: US)
  Receive Date: 20231006
  Receipt Date: 20231006
  Transmission Date: 20240110
  Serious: Yes (Hospitalization, Other)
  Sender: FDA-Public Use
  Company Number: US-ALKEM LABORATORIES LIMITED-US-ALKEM-2023-10732

PATIENT
  Age: 7 Month
  Sex: Female

DRUGS (6)
  1. ACETAMINOPHEN [Suspect]
     Active Substance: ACETAMINOPHEN
     Indication: Respiratory tract infection
     Dosage: 5 MILLILITER OR 160MG (SUPRATHERAPEUTIC DOSES) (LIQUID) (EVERY 4 HOURS SINCE THE INITIAL VISIT (99 M
     Route: 065
  2. ACETAMINOPHEN [Suspect]
     Active Substance: ACETAMINOPHEN
     Indication: Otitis media acute
  3. IBUPROFEN [Suspect]
     Active Substance: IBUPROFEN
     Indication: Respiratory tract infection
     Dosage: UNK
     Route: 065
  4. IBUPROFEN [Suspect]
     Active Substance: IBUPROFEN
     Indication: Otitis media acute
  5. AZITHROMYCIN [Concomitant]
     Active Substance: AZITHROMYCIN
     Indication: Otitis media acute
     Dosage: UNK
     Route: 065
  6. AZITHROMYCIN [Concomitant]
     Active Substance: AZITHROMYCIN
     Indication: Respiratory tract infection

REACTIONS (9)
  - Encephalopathy [Unknown]
  - Coagulopathy [Unknown]
  - Hyperammonaemia [Unknown]
  - Hepatic failure [Recovered/Resolved]
  - Drug-induced liver injury [Recovered/Resolved]
  - Drug level increased [Recovered/Resolved]
  - Overdose [Unknown]
  - Toxicity to various agents [Unknown]
  - Dose calculation error [Unknown]
